FAERS Safety Report 8208825-1 (Version None)
Quarter: 2012Q1

REPORT INFORMATION
  Report Type: 
  Country: None (occurrence: None)
  Receive Date: 20120314
  Receipt Date: 20120306
  Transmission Date: 20120608
  Serious: Yes (Other)
  Sender: FDA-Public Use
  Company Number: CA-PFIZER INC-2011276778

PATIENT
  Age: 59 Year
  Sex: Female
  Weight: 55.8 kg

DRUGS (5)
  1. PROVERA [Suspect]
     Indication: HORMONE REPLACEMENT THERAPY
     Dosage: 5 MG, 1X/DAY
     Route: 048
     Dates: start: 20080401
  2. ACTONEL [Concomitant]
     Indication: OSTEOPOROSIS
     Dosage: UNK WEEKLY
     Dates: start: 20080401
  3. PROVERA [Suspect]
     Dosage: 5 MG, 1X/DAY
     Route: 048
     Dates: start: 20110526, end: 20110608
  4. PROVERA [Suspect]
     Dosage: UNK
     Dates: start: 20110721
  5. PREMARIN [Concomitant]
     Indication: HORMONE REPLACEMENT THERAPY
     Dosage: 0.625 UNK, 1X/DAY
     Dates: start: 20080401

REACTIONS (4)
  - DRUG INEFFECTIVE [None]
  - SPINAL DISORDER [None]
  - UTERINE HAEMORRHAGE [None]
  - UTERINE POLYP [None]
